FAERS Safety Report 10533689 (Version 2)
Quarter: 2014Q4

REPORT INFORMATION
  Report Type: Spontaneous
  Country: US (occurrence: US)
  Receive Date: 20141022
  Receipt Date: 20141111
  Transmission Date: 20150529
  Serious: No
  Sender: FDA-Public Use
  Company Number: US-009507513-1410USA003407

PATIENT
  Sex: Female
  Weight: 77.98 kg

DRUGS (1)
  1. NEXPLANON [Suspect]
     Active Substance: ETONOGESTREL
     Dosage: UNK
     Route: 059
     Dates: start: 20130611

REACTIONS (10)
  - Implant site infection [Recovered/Resolved]
  - Fungal infection [Recovered/Resolved]
  - Implant site warmth [Recovered/Resolved]
  - Implant site abscess [Recovered/Resolved]
  - Menstruation normal [Unknown]
  - Medical device complication [Unknown]
  - Implant site pain [Recovered/Resolved]
  - Implant site erythema [Recovered/Resolved]
  - Implant site swelling [Recovered/Resolved]
  - Weight increased [Unknown]

NARRATIVE: CASE EVENT DATE: 2013
